FAERS Safety Report 7948359-2 (Version None)
Quarter: 2011Q4

REPORT INFORMATION
  Report Type: 
  Country: None (occurrence: None)
  Receive Date: 20111130
  Receipt Date: 20111116
  Transmission Date: 20120403
  Serious: Yes (Death)
  Sender: FDA-Public Use
  Company Number: US-MYLANLABS-2009S1021580

PATIENT
  Age: 48 Year
  Sex: Male
  Weight: 179.17 kg

DRUGS (6)
  1. CYCLOBENZAPRINE [Concomitant]
  2. LISINOPRIL AND HYDROCHLOROTHIAZIDE [Concomitant]
     Indication: HYPERTENSION
     Dosage: 20MG/25MG TABLETS
     Route: 048
  3. FENTANYL-100 [Suspect]
     Indication: BACK PAIN
     Route: 062
     Dates: end: 20071217
  4. ACETAMINOPHEN AND HYDROCODONE BITARTRATE [Concomitant]
  5. FENTANYL-100 [Suspect]
     Dosage: CHANGE PATCHES Q3D
     Route: 062
     Dates: end: 20071215
  6. GABAPENTIN [Concomitant]

REACTIONS (3)
  - TOXICITY TO VARIOUS AGENTS [None]
  - SUDDEN CARDIAC DEATH [None]
  - OVERDOSE [None]
